FAERS Safety Report 6007888-1 (Version None)
Quarter: 2008Q4

REPORT INFORMATION
  Report Type: 
  Country: None (occurrence: None)
  Receive Date: 20081217
  Receipt Date: 20080709
  Transmission Date: 20090506
  Serious: No
  Sender: FDA-Public Use
  Company Number: US-ASTRAZENECA-2008UW13777

PATIENT

DRUGS (2)
  1. CRESTOR [Suspect]
     Route: 048
     Dates: start: 20070101
  2. AVODART [Interacting]

REACTIONS (2)
  - DRUG INTERACTION [None]
  - MYALGIA [None]
